FAERS Safety Report 9880733 (Version 2)
Quarter: 2014Q1

REPORT INFORMATION
  Report Type: Spontaneous
  Country: AR (occurrence: None)
  Receive Date: 20140205
  Receipt Date: 20140304
  Transmission Date: 20141002
  Serious: Yes (Other)
  Sender: FDA-Public Use
  Company Number: VAL_02962_2014

PATIENT
  Sex: Female

DRUGS (1)
  1. BASOFORTINA [Suspect]
     Indication: PRODUCT USED FOR UNKNOWN INDICATION
     Route: 048
     Dates: start: 2010, end: 2010

REACTIONS (5)
  - Maternal exposure before pregnancy [None]
  - Pregnancy [None]
  - Abortion spontaneous [None]
  - Haemorrhage [None]
  - Thrombosis [None]
